FAERS Safety Report 16456174 (Version 2)
Quarter: 2019Q3

REPORT INFORMATION
  Report Type: Spontaneous
  Country: US (occurrence: US)
  Receive Date: 20190620
  Receipt Date: 20190715
  Transmission Date: 20191004
  Serious: Yes (Other)
  Sender: FDA-Public Use
  Company Number: US-BAYER-2019-117618

PATIENT
  Age: 43 Year
  Sex: Female

DRUGS (3)
  1. MIRENA [Suspect]
     Active Substance: LEVONORGESTREL
     Indication: CONTRACEPTION
     Dosage: 20 MCG/24HR, CONT
     Route: 015
     Dates: start: 20190402, end: 20190630
  2. MIRENA [Suspect]
     Active Substance: LEVONORGESTREL
     Indication: CONTRACEPTION
     Dosage: 20 MCG/24HR, CONT
     Route: 015
     Dates: start: 20190630, end: 20190630
  3. MIRENA [Suspect]
     Active Substance: LEVONORGESTREL
     Indication: CONTRACEPTION

REACTIONS (7)
  - Contraindicated device used [None]
  - Device expulsion [Recovered/Resolved]
  - Endometrial disorder [None]
  - Medical device monitoring error [None]
  - Device difficult to use [None]
  - Complication of device insertion [None]
  - Procedural haemorrhage [None]

NARRATIVE: CASE EVENT DATE: 20190618
